FAERS Safety Report 5456187-5 (Version None)
Quarter: 2007Q3

REPORT INFORMATION
  Report Type: 
  Country: None (occurrence: None)
  Receive Date: 20070914
  Receipt Date: 20070914
  Transmission Date: 20080115
  Serious: Yes (Hospitalization)
  Sender: FDA-Public Use
  Company Number: None

PATIENT
  Sex: Male
  Weight: 104.9 kg

DRUGS (16)
  1. DOXIL [Suspect]
     Dosage: 89 MG
  2. ABH [Concomitant]
  3. COLACE [Concomitant]
  4. COREG CR [Concomitant]
  5. FLOMAX [Concomitant]
  6. GLUCOPHAGE XR [Concomitant]
  7. GLUCOTROL XL [Concomitant]
  8. ACETAMINOPHEN AND HYDROCODONE BITARTRATE [Concomitant]
  9. JANUVIA [Concomitant]
  10. LANTUS [Concomitant]
  11. LASIX [Concomitant]
  12. LYRICA [Concomitant]
  13. MIRAPEX [Concomitant]
  14. PRILOSEC [Concomitant]
  15. VALTREX [Concomitant]
  16. ZOCOR [Concomitant]

REACTIONS (3)
  - GAIT DISTURBANCE [None]
  - OPEN WOUND [None]
  - PALMAR-PLANTAR ERYTHRODYSAESTHESIA SYNDROME [None]
